FAERS Safety Report 7358212-3 (Version None)
Quarter: 2011Q1

REPORT INFORMATION
  Report Type: 
  Country: None (occurrence: None)
  Receive Date: 20110314
  Receipt Date: 20110314
  Transmission Date: 20110831
  Serious: No
  Sender: FDA-Public Use
  Company Number: None

PATIENT
  Age: 62 Year
  Sex: Male
  Weight: 74.8435 kg

DRUGS (2)
  1. OXYCONTIN [Suspect]
     Indication: PAIN
     Dosage: 12 PER DAY DAILY
     Dates: start: 20000101, end: 20100101
  2. OXYCONTIN [Suspect]
     Indication: PNEUMOTHORAX
     Dosage: 12 PER DAY DAILY
     Dates: start: 20000101, end: 20100101

REACTIONS (3)
  - DRUG EFFECT DECREASED [None]
  - PRODUCT FORMULATION ISSUE [None]
  - PRODUCT SUBSTITUTION ISSUE [None]
